FAERS Safety Report 6406109-5 (Version None)
Quarter: 2009Q4

REPORT INFORMATION
  Report Type: 
  Country: None (occurrence: None)
  Receive Date: 20091019
  Receipt Date: 20091012
  Transmission Date: 20100525
  Serious: Yes (Hospitalization)
  Sender: FDA-Public Use
  Company Number: US-CELGENEUS-163-20785-09071482

PATIENT
  Sex: Female

DRUGS (2)
  1. THALOMID [Suspect]
     Route: 048
     Dates: start: 20081003, end: 20090712
  2. THALOMID [Suspect]
     Indication: BREAST CANCER
     Route: 048
     Dates: start: 20060504

REACTIONS (3)
  - FALL [None]
  - HIP FRACTURE [None]
  - WRIST FRACTURE [None]
